FAERS Safety Report 13864643 (Version 2)
Quarter: 2018Q1

REPORT INFORMATION
  Report Type: Report from Study
  Country: BR (occurrence: BR)
  Receive Date: 20170814
  Receipt Date: 20180207
  Transmission Date: 20180508
  Serious: No
  Sender: FDA-Public Use
  Company Number: PHHY2017BR118876

PATIENT
  Sex: Female
  Weight: 49 kg

DRUGS (3)
  1. SYSTANE (HYPROMELLOSE 2910 (4000 MPA.S)) [Suspect]
     Active Substance: HYPROMELLOSE 2910 (4000 MPA.S)
     Indication: OCULAR DISCOMFORT
     Dosage: UNK
     Route: 065
     Dates: start: 2017, end: 2017
  2. TRAVATAN Z [Suspect]
     Active Substance: TRAVOPROST
     Indication: CATARACT
  3. TRAVATAN Z [Suspect]
     Active Substance: TRAVOPROST
     Indication: INTRAOCULAR PRESSURE INCREASED
     Dosage: 1 DRP, QD (ONCE IN EVENING), EACH EYE
     Route: 047

REACTIONS (3)
  - Visual impairment [Unknown]
  - Photophobia [Recovered/Resolved]
  - Discomfort [Unknown]
